FAERS Safety Report 24181232 (Version 2)
Quarter: 2025Q1

REPORT INFORMATION
  Report Type: Spontaneous
  Country: CA (occurrence: CA)
  Receive Date: 20240806
  Receipt Date: 20250306
  Transmission Date: 20250408
  Serious: Yes (Hospitalization, Other)
  Sender: PFIZER
  Company Number: CA-PFIZER INC-202400230409

PATIENT
  Age: 61 Year
  Sex: Male

DRUGS (15)
  1. SPIRONOLACTONE [Suspect]
     Active Substance: SPIRONOLACTONE
     Indication: Cardiac failure
     Dosage: 12.5 MG, 1X/DAY
     Route: 048
  2. AMIODARONE [Suspect]
     Active Substance: AMIODARONE
     Indication: Cardiac failure
     Dosage: 400 MG, 1X/DAY
     Route: 048
  3. AMIODARONE [Suspect]
     Active Substance: AMIODARONE
     Route: 065
  4. VENLAFAXINE HYDROCHLORIDE [Suspect]
     Active Substance: VENLAFAXINE HYDROCHLORIDE
     Indication: Depression
     Route: 065
  5. VENLAFAXINE HYDROCHLORIDE [Suspect]
     Active Substance: VENLAFAXINE HYDROCHLORIDE
     Dosage: 150 MG, DAILY
     Route: 048
  6. VENLAFAXINE HYDROCHLORIDE [Suspect]
     Active Substance: VENLAFAXINE HYDROCHLORIDE
     Route: 065
  7. ACORAMIDIS [Concomitant]
     Active Substance: ACORAMIDIS
     Indication: Cardiac amyloidosis
  8. APIXABAN [Concomitant]
     Active Substance: APIXABAN
     Indication: Atrial fibrillation
     Dosage: 5 MG, 1X/DAY
     Route: 048
  9. DIGOXIN [Concomitant]
     Active Substance: DIGOXIN
     Indication: Atrial fibrillation
     Dosage: 0.125 MG, 1X/DAY
     Route: 048
  10. MELATONIN [Concomitant]
     Active Substance: MELATONIN
     Indication: Insomnia
     Dosage: 6 MG, 1X/DAY
     Route: 048
  11. MIDODRINE [Concomitant]
     Active Substance: MIDODRINE
     Indication: Hypotension
     Dosage: 30 MG, 1X/DAY
     Route: 048
  12. ZOPICLONE [Concomitant]
     Active Substance: ZOPICLONE
     Indication: Insomnia
     Dosage: 100 MG, 1X/DAY
     Route: 048
  13. ALLOPURINOL [Concomitant]
     Active Substance: ALLOPURINOL
     Indication: Gout
     Dosage: 300 MG, 1X/DAY
  14. ATORVASTATIN [Concomitant]
     Active Substance: ATORVASTATIN
     Indication: Dyslipidaemia
     Route: 048
  15. VITAMIN D3 [Concomitant]
     Active Substance: CHOLECALCIFEROL
     Dosage: 10000 IU, WEEKLY
     Route: 048

REACTIONS (44)
  - Altered state of consciousness [Recovered/Resolved]
  - Bradycardia [Recovered/Resolved]
  - Bundle branch block left [Recovered/Resolved]
  - Cardiac cirrhosis [Recovered/Resolved]
  - Chest pain [Recovered/Resolved]
  - Coma scale abnormal [Recovered/Resolved]
  - Condition aggravated [Recovered/Resolved]
  - Drug ineffective for unapproved indication [Recovered/Resolved]
  - Electrocardiogram abnormal [Recovered/Resolved]
  - Hypotension [Recovered/Resolved]
  - Impulsive behaviour [Recovered/Resolved]
  - Intentional overdose [Recovered/Resolved]
  - Malaise [Recovered/Resolved]
  - Suicidal ideation [Recovered/Resolved]
  - Suicide attempt [Recovered/Resolved]
  - Acute kidney injury [Recovered/Resolved]
  - Atrial enlargement [Recovered/Resolved]
  - Atrial pressure increased [Recovered/Resolved]
  - Bacteraemia [Recovered/Resolved]
  - Constipation [Recovered/Resolved]
  - Delirium [Recovered/Resolved]
  - Diverticulitis [Recovered/Resolved]
  - Ejection fraction decreased [Recovered/Resolved]
  - Endocarditis [Recovered/Resolved]
  - Fall [Recovered/Resolved]
  - Gram stain positive [Recovered/Resolved]
  - Hepatic cirrhosis [Recovered/Resolved]
  - Hypervolaemia [Recovered/Resolved]
  - Hypokalaemia [Recovered/Resolved]
  - Inferior vena cava dilatation [Recovered/Resolved]
  - Inguinal hernia [Recovered/Resolved]
  - Insomnia [Recovered/Resolved]
  - Left ventricular dilatation [Recovered/Resolved]
  - Left ventricular dysfunction [Recovered/Resolved]
  - Left ventricular hypertrophy [Recovered/Resolved]
  - Mitral valve incompetence [Recovered/Resolved]
  - Right ventricular enlargement [Recovered/Resolved]
  - SARS-CoV-2 test positive [Recovered/Resolved]
  - Tricuspid valve incompetence [Recovered/Resolved]
  - Tricuspid valve thickening [Recovered/Resolved]
  - Urinary tract infection [Recovered/Resolved]
  - Ventricular hypokinesia [Recovered/Resolved]
  - Ventricular tachycardia [Recovered/Resolved]
  - Wound [Recovered/Resolved]
